FAERS Safety Report 6068790-2 (Version None)
Quarter: 2009Q1

REPORT INFORMATION
  Report Type: 
  Country: None (occurrence: None)
  Receive Date: 20090206
  Receipt Date: 20090204
  Transmission Date: 20090719
  Serious: Yes (Death, Hospitalization)
  Sender: FDA-Public Use
  Company Number: US-JNJFOC-20090201554

PATIENT
  Sex: Male
  Weight: 81.65 kg

DRUGS (4)
  1. DURAGESIC-100 [Suspect]
     Indication: SPINAL FRACTURE
     Route: 062
  2. VALIUM [Concomitant]
     Route: 048
  3. ZANTAC [Concomitant]
     Route: 048
  4. PROZAC [Concomitant]
     Route: 048

REACTIONS (1)
  - MYOCARDIAL INFARCTION [None]
